FAERS Safety Report 5820743-2 (Version None)
Quarter: 2008Q3

REPORT INFORMATION
  Report Type: 
  Country: None (occurrence: None)
  Receive Date: 20080724
  Receipt Date: 20080703
  Transmission Date: 20090109
  Serious: Yes (Other)
  Sender: FDA-Public Use
  Company Number: A0721377A

PATIENT
  Age: 48 Year
  Sex: Male
  Weight: 133.9 kg

DRUGS (7)
  1. AVANDIA [Suspect]
     Dosage: 4MG PER DAY
     Route: 048
     Dates: start: 20071015, end: 20080318
  2. GLYBURIDE [Concomitant]
     Dosage: 20MG PER DAY
     Route: 048
     Dates: start: 20071214
  3. METFORMIN [Concomitant]
     Dosage: 500MG TWICE PER DAY
     Route: 048
     Dates: start: 20071001
  4. SIMVASTATIN [Concomitant]
     Indication: BLOOD CHOLESTEROL INCREASED
     Dosage: 40MG AT NIGHT
     Route: 048
     Dates: start: 20071001
  5. LISINOPRIL [Concomitant]
     Indication: HYPERTENSION
     Dosage: 10MG PER DAY
     Route: 048
     Dates: start: 20071001
  6. LOPID [Concomitant]
     Dosage: 600MG TWICE PER DAY
     Route: 048
     Dates: start: 20080618
  7. AMOXICILLIN [Concomitant]
     Indication: UPPER RESPIRATORY TRACT INFECTION
     Dosage: 500MG THREE TIMES PER DAY
     Route: 048
     Dates: start: 20080318

REACTIONS (1)
  - HEPATIC ENZYME INCREASED [None]
